FAERS Safety Report 24222469 (Version 1)
Quarter: 2024Q3

REPORT INFORMATION
  Report Type: Spontaneous
  Country: AU (occurrence: AU)
  Receive Date: 20240819
  Receipt Date: 20240819
  Transmission Date: 20241016
  Serious: Yes (Hospitalization)
  Sender: MYLAN
  Company Number: AU-MYLANLABS-2024M1076220

PATIENT
  Age: 67 Year
  Sex: Male

DRUGS (6)
  1. ASPIRIN [Suspect]
     Active Substance: ASPIRIN
     Indication: Electrocardiogram ST segment elevation
     Dosage: UNK
     Route: 065
  2. ISOSORBIDE MONONITRATE [Suspect]
     Active Substance: ISOSORBIDE MONONITRATE
     Indication: Arteriospasm coronary
     Dosage: UNK
     Route: 065
  3. VERAPAMIL [Suspect]
     Active Substance: VERAPAMIL HYDROCHLORIDE
     Indication: Arteriospasm coronary
     Dosage: UNK, RECEIVED HIGH-DOSE
     Route: 065
  4. BENRALIZUMAB [Suspect]
     Active Substance: BENRALIZUMAB
     Indication: NSAID exacerbated respiratory disease
     Dosage: UNK
     Route: 065
  5. HEPARIN [Concomitant]
     Active Substance: HEPARIN SODIUM
     Indication: Electrocardiogram ST segment elevation
     Dosage: UNK
     Route: 065
  6. NITROGLYCERIN [Concomitant]
     Active Substance: NITROGLYCERIN
     Indication: Electrocardiogram ST segment elevation
     Dosage: UNK
     Route: 060

REACTIONS (3)
  - NSAID exacerbated respiratory disease [Recovering/Resolving]
  - Drug ineffective [Unknown]
  - Arteriospasm coronary [Recovering/Resolving]
